FAERS Safety Report 8132615-1 (Version None)
Quarter: 2012Q1

REPORT INFORMATION
  Report Type: 
  Country: None (occurrence: None)
  Receive Date: 20120213
  Receipt Date: 20120207
  Transmission Date: 20120608
  Serious: Yes (Hospitalization)
  Sender: FDA-Public Use
  Company Number: US-GLAXOSMITHKLINE-A0915678A

PATIENT
  Age: 53 Year
  Sex: Female
  Weight: 115.9 kg

DRUGS (7)
  1. GLUCOPHAGE [Concomitant]
  2. GLIPIZIDE [Concomitant]
  3. INSULIN [Concomitant]
  4. NADOLOL [Concomitant]
  5. LISINOPRIL [Concomitant]
  6. NEURONTIN [Concomitant]
  7. AVANDIA [Suspect]
     Indication: DIABETES MELLITUS
     Dosage: 4MG TWICE PER DAY
     Route: 048
     Dates: start: 20090211, end: 20100401

REACTIONS (5)
  - DIASTOLIC DYSFUNCTION [None]
  - HYPERTENSION [None]
  - RENAL FAILURE ACUTE [None]
  - CARDIAC FAILURE CONGESTIVE [None]
  - HYPOXIA [None]
